FAERS Safety Report 5488215-5 (Version None)
Quarter: 2007Q3

REPORT INFORMATION
  Report Type: 
  Country: None (occurrence: None)
  Receive Date: 20070926
  Receipt Date: 20070723
  Transmission Date: 20080115
  Serious: No
  Sender: FDA-Public Use
  Company Number: HQWYE195124JUL07

PATIENT
  Age: 59 Year
  Sex: Male

DRUGS (2)
  1. TORISEL [Suspect]
     Indication: RENAL CELL CARCINOMA STAGE UNSPECIFIED
     Dosage: INTRAVENOUS, 25 MG, INTRAVENOUS
     Route: 042
     Dates: start: 20070723, end: 20070723
  2. TORISEL [Suspect]
     Indication: RENAL CELL CARCINOMA STAGE UNSPECIFIED
     Dosage: INTRAVENOUS, 25 MG, INTRAVENOUS
     Route: 042
     Dates: start: 20070726, end: 20070726

REACTIONS (1)
  - PLATELET COUNT DECREASED [None]
